FAERS Safety Report 22057846 (Version 1)
Quarter: 2023Q1

REPORT INFORMATION
  Report Type: Report from Study
  Country: US (occurrence: US)
  Receive Date: 20230303
  Receipt Date: 20230303
  Transmission Date: 20230418
  Serious: No
  Sender: FDA-Public Use
  Company Number: US-ORG100014127-2023000072

PATIENT
  Age: 53 Year
  Sex: Female

DRUGS (2)
  1. METOPIRONE [Suspect]
     Active Substance: METYRAPONE
     Indication: Cushing^s syndrome
     Dosage: TAKE 2 CAPSULES BY MOUTH 3 TIMES PER DAY
     Dates: start: 20210323, end: 20230113
  2. METYROSINE CAP 250MG [Concomitant]
     Indication: Product used for unknown indication

REACTIONS (1)
  - Off label use [Recovered/Resolved]

NARRATIVE: CASE EVENT DATE: 20210323
